FAERS Safety Report 9254070 (Version 4)
Quarter: 2013Q2

REPORT INFORMATION
  Report Type: Spontaneous
  Country: AU (occurrence: None)
  Receive Date: 20130422
  Receipt Date: 20130523
  Transmission Date: 20140414
  Serious: Yes (Hospitalization)
  Sender: FDA-Public Use
  Company Number: ACO_35576_2013

PATIENT
  Age: 53 Year
  Sex: Female
  Weight: 105 kg

DRUGS (16)
  1. FAMPRIDINE-SR [Suspect]
     Indication: MULTIPLE SCLEROSIS
     Route: 048
     Dates: start: 20120523
  2. WARFARIN (WARFARIN SODIUM) (TABLET) [Concomitant]
  3. BACLOFEN (BACLOFEN) (BACLOFEN) [Concomitant]
  4. LOVAN (FLUOXETINE HYDROCHLORIDE) C [Concomitant]
  5. CLEXANE (ENOXAPARIN SODIUM) [Concomitant]
  6. ZOFRAN (ONDANSETRON) [Concomitant]
  7. MORPHINE (MORPHINE HYDROCHLORIDE) [Concomitant]
  8. MAXOLON (METOCLOPRAMIDE HYDROCHLORIDE) [Concomitant]
  9. PANADEINE (CODEINE PHOSPHATE, PARACETAMOL) [Concomitant]
  10. NUROFEN (IBUPROFEN) [Concomitant]
  11. ENDONE (OXYCODONE HYDROCHLORIDE) [Concomitant]
  12. TYSABRI (NATALIZUMAB) [Concomitant]
  13. VESICARE (SOLIFENACIN SUCCINATE) [Concomitant]
  14. MULTIVITAMIN (ASCORBIC ACID, CALCIUM CARBONATE, CYANOCOBALAMIN, NICOTINAMIDE, PYRIDOXINE HYDROCHLORIDE, RIBOFLAVIN SODIUM PHOSPHATE. THIAMINE HYDROCHLORIDE) [Concomitant]
  15. CALTRATE (CALCIUM CARBONATE) [Concomitant]
  16. FISH OIL (FISH OIL) [Concomitant]

REACTIONS (10)
  - Fall [None]
  - Fibula fracture [None]
  - Exostosis [None]
  - Avulsion fracture [None]
  - Osteochondrosis [None]
  - Nausea [None]
  - Pain [None]
  - Depression [None]
  - Muscle spasticity [None]
  - Hypertonic bladder [None]
